FAERS Safety Report 8809828 (Version 1)
Quarter: 2012Q4

REPORT INFORMATION
  Report Type: 
  Country: IT (occurrence: IT)
  Receive Date: 20120926
  Receipt Date: 20120926
  Transmission Date: 20130627
  Serious: Yes (Death)
  Sender: FDA-Public Use
  Company Number: IT-ACTELION-A-CH2012-71836

PATIENT
  Age: 46 Month
  Sex: Female

DRUGS (3)
  1. TRACLEER [Suspect]
     Indication: HEART DISEASE CONGENITAL
     Dosage: 2.0 mg/kg, bid
     Route: 048
  2. SILDENAFIL [Concomitant]
  3. PROSTACYCLIN [Concomitant]

REACTIONS (3)
  - Vena cava thrombosis [Fatal]
  - Pulmonary artery thrombosis [Fatal]
  - Sudden death [Fatal]
